FAERS Safety Report 19037624 (Version 1)
Quarter: 2021Q1

REPORT INFORMATION
  Report Type: Other
  Country: NZ (occurrence: NZ)
  Receive Date: 20210322
  Receipt Date: 20210322
  Transmission Date: 20210420
  Serious: Yes (Life-Threatening, Hospitalization)
  Sender: FDA-Public Use
  Company Number: NZ-DEXPHARM-20210295

PATIENT
  Age: 81 Year
  Sex: Male

DRUGS (5)
  1. DILTIAZEM. [Concomitant]
     Active Substance: DILTIAZEM
     Dosage: 360 MG OD
  2. IDARUCIZUMAB [Suspect]
     Active Substance: IDARUCIZUMAB
  3. DABIGATRAN [Suspect]
     Active Substance: DABIGATRAN
     Dosage: 110 MG BID
  4. ASPIRIN. [Suspect]
     Active Substance: ASPIRIN
     Dosage: 100 MG OD
  5. OMEPRAZOLE. [Interacting]
     Active Substance: OMEPRAZOLE
     Dosage: 20 MG OD

REACTIONS (2)
  - Drug ineffective [Recovered/Resolved]
  - Drug interaction [Recovered/Resolved]
